FAERS Safety Report 4618970-5 (Version None)
Quarter: 2005Q1

REPORT INFORMATION
  Report Type: 
  Country: None (occurrence: None)
  Receive Date: 20050325
  Receipt Date: 20050127
  Transmission Date: 20050727
  Serious: Yes (Death)
  Sender: FDA-Public Use
  Company Number: 200510355JP

PATIENT
  Age: 74 Year
  Sex: Male

DRUGS (8)
  1. ARAVA [Suspect]
     Indication: RHEUMATOID ARTHRITIS
     Route: 048
     Dates: start: 20031114, end: 20040111
  2. PREDONINE [Concomitant]
     Indication: MUSCULOSKELETAL PAIN
     Route: 048
  3. SELBEX [Concomitant]
     Indication: PROPHYLAXIS
     Route: 048
  4. TAKEPRON [Concomitant]
     Indication: MUSCULOSKELETAL PAIN
     Route: 048
  5. AZULFIDINE [Concomitant]
     Indication: MUSCULOSKELETAL PAIN
     Route: 048
  6. RHEUMATREX [Concomitant]
     Indication: MUSCULOSKELETAL PAIN
     Route: 048
     Dates: end: 20031027
  7. VOLTAREN [Concomitant]
     Indication: MUSCULOSKELETAL PAIN
     Route: 054
     Dates: start: 20031024, end: 20031211
  8. SM [Concomitant]
     Indication: PROPHYLAXIS
     Route: 048

REACTIONS (21)
  - ABDOMINAL PAIN [None]
  - ALANINE AMINOTRANSFERASE INCREASED [None]
  - ASPARTATE AMINOTRANSFERASE INCREASED [None]
  - BLOOD ALBUMIN DECREASED [None]
  - BLOOD ALKALINE PHOSPHATASE INCREASED [None]
  - BLOOD FIBRINOGEN INCREASED [None]
  - BLOOD GLUCOSE INCREASED [None]
  - BLOOD LACTATE DEHYDROGENASE INCREASED [None]
  - C-REACTIVE PROTEIN INCREASED [None]
  - CONDITION AGGRAVATED [None]
  - DIVERTICULITIS [None]
  - HAEMOGLOBIN DECREASED [None]
  - INTERSTITIAL LUNG DISEASE [None]
  - MULTI-ORGAN FAILURE [None]
  - PERITONITIS [None]
  - PO2 DECREASED [None]
  - POST PROCEDURAL COMPLICATION [None]
  - RED CELL DISTRIBUTION WIDTH INCREASED [None]
  - RETROPERITONEAL ABSCESS [None]
  - SURGICAL PROCEDURE REPEATED [None]
  - URINE ANALYSIS ABNORMAL [None]
